FAERS Safety Report 8905839 (Version 3)
Quarter: 2013Q1

REPORT INFORMATION
  Report Type: Spontaneous
  Country: US (occurrence: US)
  Receive Date: 20121113
  Receipt Date: 20130124
  Transmission Date: 20140127
  Serious: Yes (Hospitalization, Other)
  Sender: FDA-Public Use
  Company Number: US-INCYTE CORPORATION-2012IN002252

PATIENT
  Age: 88 None
  Sex: Female
  Weight: 49.89 kg

DRUGS (10)
  1. JAKAFI [Suspect]
     Indication: MYELOPROLIFERATIVE DISORDER
     Dosage: 15 MG, BID
     Route: 048
     Dates: start: 201201, end: 2012
  2. FOLIC ACID [Concomitant]
     Dosage: 1 MG, QD
     Route: 048
     Dates: start: 20111219
  3. KAYEXALATE [Concomitant]
     Dosage: 15 MG, BID
     Route: 048
     Dates: start: 20101213
  4. OS-CAL 500 + D [Concomitant]
     Dosage: UNK
     Dates: start: 20090406
  5. VITAMIN E [Concomitant]
     Dosage: 400 IU, QD
     Dates: start: 20090406
  6. ALENDRONATE SODIUM [Concomitant]
     Dosage: 70 MG WEEKLY
     Dates: start: 20091123
  7. VITAMIN D [Concomitant]
     Dosage: UNK
     Route: 048
     Dates: start: 20090921
  8. ASPIRIN [Concomitant]
     Dosage: 325 MG, QD
  9. LOVENOX [Concomitant]
  10. FISH OIL [Concomitant]

REACTIONS (4)
  - Pulmonary embolism [Unknown]
  - Deep vein thrombosis [Unknown]
  - Sarcoma [None]
  - Anaemia [Unknown]
